FAERS Safety Report 4533394-7 (Version None)
Quarter: 2004Q4

REPORT INFORMATION
  Report Type: 
  Country: None (occurrence: None)
  Receive Date: 20041210
  Receipt Date: 20041026
  Transmission Date: 20050328
  Serious: Yes (Hospitalization)
  Sender: FDA-Public Use
  Company Number: 2004-00377

PATIENT
  Age: 87 Year
  Sex: Female
  Weight: 55.3 kg

DRUGS (1)
  1. VELCADE [Suspect]
     Indication: MULTIPLE MYELOMA
     Dosage: 1.90 MG, IV BOLUS
     Route: 023
     Dates: start: 20040601, end: 20040611

REACTIONS (1)
  - HERPES ZOSTER [None]
